FAERS Safety Report 6385371-1 (Version None)
Quarter: 2009Q4

REPORT INFORMATION
  Report Type: 
  Country: None (occurrence: None)
  Receive Date: 20091002
  Receipt Date: 20080902
  Transmission Date: 20100525
  Serious: No
  Sender: FDA-Public Use
  Company Number: US-ASTRAZENECA-2008UW18019

PATIENT
  Age: 68 Year
  Sex: Female
  Weight: 72.6 kg

DRUGS (5)
  1. ARIMIDEX [Suspect]
     Indication: BREAST CANCER
     Route: 048
     Dates: start: 20080501
  2. ARIMIDEX [Suspect]
     Indication: BREAST LUMP REMOVAL
     Route: 048
     Dates: start: 20080501
  3. VERAPAMIL [Concomitant]
  4. RYTHMOL [Concomitant]
  5. ASPIRIN [Concomitant]

REACTIONS (5)
  - BACK PAIN [None]
  - BLOOD CHOLESTEROL INCREASED [None]
  - HEART RATE INCREASED [None]
  - PAIN IN EXTREMITY [None]
  - TACHYCARDIA [None]
